FAERS Safety Report 4793489-X (Version None)
Quarter: 2005Q4

REPORT INFORMATION
  Report Type: 
  Country: None (occurrence: None)
  Receive Date: 20051011
  Receipt Date: 20050824
  Transmission Date: 20060501
  Serious: No
  Sender: FDA-Public Use
  Company Number: US-BRISTOL-MYERS SQUIBB COMPANY-13088513

PATIENT
  Sex: Female

DRUGS (2)
  1. GLUCOPHAGE XR [Suspect]
     Dosage: DOSE TAKEN IN THE EVENING
  2. GLIPIZIDE [Suspect]
     Dosage: 10MG IN THE AM AND 5 MG IN THE PM

REACTIONS (1)
  - BLOOD GLUCOSE FLUCTUATION [None]
